FAERS Safety Report 9691191 (Version 3)
Quarter: 2014Q3

REPORT INFORMATION
  Report Type: Spontaneous
  Country: US (occurrence: US)
  Receive Date: 20131115
  Receipt Date: 20140718
  Transmission Date: 20150326
  Serious: Yes (Death, Hospitalization, Other)
  Sender: FDA-Public Use
  Company Number: US-009507513-1311USA005846

PATIENT
  Sex: Male
  Weight: 93.42 kg

DRUGS (6)
  1. JANUMET [Suspect]
     Active Substance: METFORMIN HYDROCHLORIDE\SITAGLIPTIN PHOSPHATE
     Indication: TYPE 2 DIABETES MELLITUS
     Dosage: 50/500 MG, BID
     Route: 048
     Dates: start: 20080909, end: 201003
  2. JANUVIA [Suspect]
     Active Substance: SITAGLIPTIN PHOSPHATE
     Indication: TYPE 2 DIABETES MELLITUS
     Dosage: 100 MG, QD
     Route: 048
     Dates: start: 20080709, end: 200809
  3. LISINOPRIL. [Concomitant]
     Active Substance: LISINOPRIL
     Indication: MYOCARDIAL INFARCTION
     Dosage: UNK
     Dates: start: 200512, end: 201212
  4. LOVASTATIN. [Concomitant]
     Active Substance: LOVASTATIN
     Indication: HYPERCHOLESTEROLAEMIA
     Dosage: UNK
     Dates: start: 200509, end: 201212
  5. NITROGLYCERIN. [Concomitant]
     Active Substance: NITROGLYCERIN
     Indication: MYOCARDIAL INFARCTION
     Dosage: UNK
     Dates: start: 200311, end: 201212
  6. JANUVIA [Suspect]
     Active Substance: SITAGLIPTIN PHOSPHATE
     Dosage: 50 MG, BID
     Route: 048
     Dates: start: 20100319, end: 201009

REACTIONS (30)
  - Appendicolith [Unknown]
  - Pulmonary mass [Unknown]
  - Pulmonary fibrosis [Unknown]
  - Myocardial infarction [Unknown]
  - Aortic arteriosclerosis [Unknown]
  - Coronary arterial stent insertion [Unknown]
  - Renal cyst [Unknown]
  - Jugular vein distension [Unknown]
  - Metastases to spleen [Unknown]
  - Metastases to lung [Unknown]
  - Renal failure chronic [Not Recovered/Not Resolved]
  - Tremor [Unknown]
  - Spinal osteoarthritis [Unknown]
  - Diverticulum intestinal [Unknown]
  - Gastric polyps [Unknown]
  - Lung neoplasm malignant [Unknown]
  - Cardiac pacemaker insertion [Unknown]
  - Sleep disorder [Unknown]
  - Hiatus hernia [Unknown]
  - Nephroptosis [Unknown]
  - Diabetes mellitus inadequate control [Unknown]
  - Hypertension [Unknown]
  - Large intestine polyp [Unknown]
  - Pulmonary granuloma [Unknown]
  - Pancreatic carcinoma [Fatal]
  - Cholelithiasis [Unknown]
  - Insulin-requiring type 2 diabetes mellitus [Unknown]
  - Diverticulitis [Unknown]
  - Cerebrovascular accident [Unknown]
  - Coronary artery disease [Unknown]

NARRATIVE: CASE EVENT DATE: 20080909
